FAERS Safety Report 20526221 (Version 1)
Quarter: 2022Q1

REPORT INFORMATION
  Report Type: Spontaneous
  Country: UG (occurrence: None)
  Receive Date: 20220225
  Receipt Date: 20220225
  Transmission Date: 20220423
  Serious: No
  Sender: FDA-Public Use
  Company Number: None

PATIENT
  Age: 32 Year
  Sex: Male
  Weight: 81 kg

DRUGS (15)
  1. XCOPRI [Suspect]
     Active Substance: CENOBAMATE
     Indication: Partial seizures
     Dosage: OTHER QUANTITY : 1 TABLET(S);?FREQUENCY : DAILY;?
     Route: 048
  2. XCOPRI [Suspect]
     Active Substance: CENOBAMATE
     Indication: Seizure cluster
  3. CANNABIS SATIVA SUBSP. INDICA TOP [Concomitant]
     Active Substance: CANNABIS SATIVA SUBSP. INDICA TOP
  4. onfi (generic) [Concomitant]
  5. CLONAZEPAM [Concomitant]
     Active Substance: CLONAZEPAM
  6. briviatt [Concomitant]
  7. AMLODIPINE [Concomitant]
     Active Substance: AMLODIPINE BESYLATE
  8. NAYZILAM [Concomitant]
     Active Substance: MIDAZOLAM
  9. AMITIZA [Concomitant]
     Active Substance: LUBIPROSTONE
  10. LOSARTAN [Concomitant]
     Active Substance: LOSARTAN
  11. CARVEDILOL [Concomitant]
     Active Substance: CARVEDILOL
  12. BUPRENORPHINE [Concomitant]
     Active Substance: BUPRENORPHINE
  13. LOW DOSE ASPIRIN [Concomitant]
     Active Substance: ASPIRIN
  14. VITAMIN D [Concomitant]
     Active Substance: VITAMIN D NOS
  15. OMEGA 3 [Concomitant]
     Active Substance: CAPSAICIN

REACTIONS (5)
  - Nasal congestion [None]
  - Rhinorrhoea [None]
  - Upper-airway cough syndrome [None]
  - Eye disorder [None]
  - Dry mouth [None]

NARRATIVE: CASE EVENT DATE: 20210917
